FAERS Safety Report 23938309 (Version 1)
Quarter: 2024Q2

REPORT INFORMATION
  Report Type: Spontaneous
  Country: US (occurrence: US)
  Receive Date: 20240604
  Receipt Date: 20240604
  Transmission Date: 20240716
  Serious: No
  Sender: FDA-Public Use
  Company Number: US-FreseniusKabi-FK202408719

PATIENT
  Age: 70 Year
  Sex: Male
  Weight: 99.79 kg

DRUGS (1)
  1. HEPARIN SODIUM [Suspect]
     Active Substance: HEPARIN SODIUM
     Indication: Anticoagulant therapy
     Dosage: FORM OF ADMIN: INJECTION?10000 UNITS PER 10ML?START, STOP DATE: ASKED BUT UNKNOWN
     Route: 042

REACTIONS (1)
  - Drug ineffective [Unknown]
